FAERS Safety Report 23762126 (Version 1)
Quarter: 2024Q2

REPORT INFORMATION
  Report Type: Spontaneous
  Country: US (occurrence: US)
  Receive Date: 20240419
  Receipt Date: 20240419
  Transmission Date: 20240716
  Serious: Yes (Death, Other)
  Sender: FDA-Public Use
  Company Number: US-BIOVITRUM-2024-US-005467

PATIENT
  Age: 55 Year
  Sex: Male

DRUGS (2)
  1. VONJO [Suspect]
     Active Substance: PACRITINIB
     Indication: Essential thrombocythaemia
     Dosage: 200 MG DAILY
     Route: 048
     Dates: start: 20240320
  2. VONJO [Suspect]
     Active Substance: PACRITINIB
     Indication: Myelodysplastic syndrome with excess blasts
     Dosage: 200 MG TWICE DAILY
     Route: 048
     Dates: start: 20240320

REACTIONS (2)
  - Off label use [Recovered/Resolved]
  - Death [Fatal]

NARRATIVE: CASE EVENT DATE: 20240320
